FAERS Safety Report 9671985 (Version 2)
Quarter: 2013Q4

REPORT INFORMATION
  Report Type: Spontaneous
  Country: US (occurrence: US)
  Receive Date: 20131106
  Receipt Date: 20131127
  Transmission Date: 20140711
  Serious: Yes (Hospitalization, Other)
  Sender: FDA-Public Use
  Company Number: US-BAYER-2013-135036

PATIENT
  Age: 58 Year
  Sex: Female

DRUGS (2)
  1. BETASERON [Suspect]
     Indication: MULTIPLE SCLEROSIS
     Dosage: 0.25 MG, QOD
     Route: 058
     Dates: start: 2003
  2. CELLCEPT [Concomitant]
     Dosage: UNK
     Dates: start: 201311

REACTIONS (4)
  - Bronchitis [Recovering/Resolving]
  - Balance disorder [None]
  - Hypoaesthesia [None]
  - Progressive multiple sclerosis [None]
